FAERS Safety Report 22238783 (Version 1)
Quarter: 2023Q2

REPORT INFORMATION
  Report Type: Spontaneous
  Country: US (occurrence: None)
  Receive Date: 20230420
  Receipt Date: 20230420
  Transmission Date: 20230722
  Serious: Yes (Hospitalization)
  Sender: FDA-Public Use
  Company Number: None

PATIENT
  Age: 36 Year
  Sex: Female
  Weight: 69.75 kg

DRUGS (2)
  1. ISOTRETINOIN [Suspect]
     Active Substance: ISOTRETINOIN
     Indication: Acne
     Dates: start: 20230216, end: 20230413
  2. ISOTRETINOIN [Suspect]
     Active Substance: ISOTRETINOIN
     Indication: Perioral dermatitis

REACTIONS (6)
  - Nausea [None]
  - Abdominal pain upper [None]
  - Gastrooesophageal reflux disease [None]
  - Weight decreased [None]
  - Feeding disorder [None]
  - High density lipoprotein decreased [None]

NARRATIVE: CASE EVENT DATE: 20230401
